FAERS Safety Report 5933187-X (Version None)
Quarter: 2008Q4

REPORT INFORMATION
  Report Type: 
  Country: None (occurrence: None)
  Receive Date: 20081028
  Receipt Date: 20081017
  Transmission Date: 20090506
  Serious: Yes (Death, Other)
  Sender: FDA-Public Use
  Company Number: PE-PFIZER INC-2008084059

PATIENT
  Sex: Male

DRUGS (2)
  1. LIPITOR [Suspect]
     Indication: DYSLIPIDAEMIA
     Dates: start: 20050508
  2. OXYGEN [Concomitant]
     Dates: start: 20080101

REACTIONS (3)
  - PULMONARY FIBROSIS [None]
  - RENAL FAILURE CHRONIC [None]
  - RESPIRATORY FAILURE [None]
